FAERS Safety Report 4443197-X (Version None)
Quarter: 2004Q3

REPORT INFORMATION
  Report Type: 
  Country: None (occurrence: None)
  Receive Date: 20040903
  Receipt Date: 20040630
  Transmission Date: 20050211
  Serious: Yes (Other)
  Sender: FDA-Public Use
  Company Number: 2004UW13628

PATIENT
  Age: 60 Year
  Sex: Female

DRUGS (1)
  1. CRESTOR [Suspect]
     Dates: end: 20040625

REACTIONS (3)
  - PAIN IN EXTREMITY [None]
  - RASH [None]
  - RENAL PAIN [None]
